FAERS Safety Report 9338953 (Version 3)
Quarter: 2013Q3

REPORT INFORMATION
  Report Type: Spontaneous
  Country: US (occurrence: US)
  Receive Date: 20130610
  Receipt Date: 20130722
  Transmission Date: 20140515
  Serious: Yes (Other)
  Sender: FDA-Public Use
  Company Number: US-PFIZER INC-2013173095

PATIENT
  Age: 54 Year
  Sex: Female
  Weight: 102 kg

DRUGS (6)
  1. PRISTIQ [Suspect]
     Indication: DEPRESSION
     Dosage: 50 MG, 1X/DAY
     Route: 048
     Dates: start: 20130509, end: 2013
  2. PRISTIQ [Suspect]
     Indication: ANXIETY
     Dosage: 100 MG, UNK
     Route: 048
     Dates: start: 2013
  3. LISINOPRIL [Concomitant]
     Indication: HYPERTENSION
     Dosage: 20 MG, 1X/DAY
  4. METOPROLOL [Concomitant]
     Indication: HYPERTENSION
     Dosage: 100 MG, 2X/DAY
  5. BUSPAR [Concomitant]
     Dosage: UNK
  6. SIMVASTATIN [Concomitant]
     Indication: BLOOD CHOLESTEROL
     Dosage: 40 MG, 1X/DAY

REACTIONS (7)
  - Off label use [Unknown]
  - Blood pressure decreased [Recovered/Resolved]
  - Skin discolouration [Unknown]
  - Visual acuity reduced [Unknown]
  - Cold sweat [Unknown]
  - Feeling hot [Unknown]
  - Drug ineffective [Unknown]
